FAERS Safety Report 7978225-8 (Version None)
Quarter: 2011Q4

REPORT INFORMATION
  Report Type: 
  Country: None (occurrence: None)
  Receive Date: 20111208
  Receipt Date: 20111129
  Transmission Date: 20120403
  Serious: Yes (Other)
  Sender: FDA-Public Use
  Company Number: 2011SP055821

PATIENT
  Age: 5 Year
  Sex: Female
  Weight: 22 kg

DRUGS (4)
  1. SINGULAIR [Suspect]
     Indication: RHINITIS ALLERGIC
     Dosage: 4 MG;QD;PO
     Route: 048
     Dates: start: 20110301, end: 20111101
  2. SINGULAIR [Suspect]
     Indication: ASTHMA
     Dosage: 4 MG;QD;PO
     Route: 048
     Dates: start: 20110301, end: 20111101
  3. DESLORATADINE [Suspect]
     Indication: RHINITIS ALLERGIC
     Dosage: 2.5 ML;QD
     Dates: start: 20110301, end: 20110701
  4. DESLORATADINE [Suspect]
     Indication: ASTHMA
     Dosage: 2.5 ML;QD
     Dates: start: 20110301, end: 20110701

REACTIONS (5)
  - ARTHRALGIA [None]
  - SUICIDAL IDEATION [None]
  - BONE PAIN [None]
  - ABDOMINAL PAIN UPPER [None]
  - NIGHTMARE [None]
